FAERS Safety Report 14669615 (Version 1)
Quarter: 2018Q1

REPORT INFORMATION
  Report Type: Report from Study
  Country: CA (occurrence: CA)
  Receive Date: 20180322
  Receipt Date: 20180322
  Transmission Date: 20180509
  Serious: Yes (Other)
  Sender: FDA-Public Use
  Company Number: CA-GLAXOSMITHKLINE-CA2018GSK047745

PATIENT
  Age: 62 Year
  Sex: Male

DRUGS (1)
  1. MEPOLIZUMAB [Suspect]
     Active Substance: MEPOLIZUMAB
     Indication: ASTHMA
     Dosage: 100 MG, Z
     Route: 042
     Dates: start: 20171219

REACTIONS (6)
  - Pharyngitis [Unknown]
  - Cough [Unknown]
  - Pulmonary congestion [Unknown]
  - Lung infection [Unknown]
  - Pyrexia [Recovered/Resolved]
  - Lower respiratory tract congestion [Unknown]

NARRATIVE: CASE EVENT DATE: 201803
